FAERS Safety Report 8402516-X (Version None)
Quarter: 2012Q2

REPORT INFORMATION
  Report Type: 
  Country: None (occurrence: None)
  Receive Date: 20120601
  Receipt Date: 20120528
  Transmission Date: 20120825
  Serious: Yes (Hospitalization, Other)
  Sender: FDA-Public Use
  Company Number: PHHY2011JP69322

PATIENT
  Sex: Male
  Weight: 63 kg

DRUGS (8)
  1. AFINITOR [Suspect]
     Indication: METASTATIC RENAL CELL CARCINOMA
     Dosage: 10 MG, DAILY
     Route: 048
     Dates: start: 20110514
  2. CYTOTEC [Concomitant]
     Indication: METASTATIC RENAL CELL CARCINOMA
     Dosage: 400 UG, UNK
     Route: 048
     Dates: start: 20110603
  3. EVIPROSTAT [Concomitant]
     Indication: METASTATIC RENAL CELL CARCINOMA
     Dosage: UNK
     Route: 048
     Dates: start: 20110812
  4. ETODOLAC [Concomitant]
     Indication: METASTATIC RENAL CELL CARCINOMA
     Dosage: 400 MG, UNK
     Route: 048
     Dates: start: 20110603
  5. FLIVASTATIN SODIUM [Concomitant]
     Indication: METASTATIC RENAL CELL CARCINOMA
     Dosage: 25 MG, UNK
     Route: 048
     Dates: start: 20110812
  6. ELTACIN [Concomitant]
     Dosage: 1 G, UNK
     Dates: start: 20110610
  7. LASIX [Concomitant]
     Indication: METASTATIC RENAL CELL CARCINOMA
     Dosage: 10 MG, UNK
     Route: 048
     Dates: start: 20110512
  8. HALCION [Concomitant]
     Dosage: 0.25 MG, UNK
     Route: 048

REACTIONS (4)
  - CELLULITIS [None]
  - C-REACTIVE PROTEIN INCREASED [None]
  - HYPERGLYCAEMIA [None]
  - NEUTROPHIL COUNT DECREASED [None]
